FAERS Safety Report 5911700-6 (Version None)
Quarter: 2008Q4

REPORT INFORMATION
  Report Type: 
  Country: None (occurrence: None)
  Receive Date: 20081007
  Receipt Date: 20080929
  Transmission Date: 20090506
  Serious: Yes (Hospitalization)
  Sender: FDA-Public Use
  Company Number: US-ELI_LILLY_AND_COMPANY-US200808000272

PATIENT
  Age: 53 Year
  Sex: Male
  Weight: 124.94 kg

DRUGS (7)
  1. BYETTA [Suspect]
     Indication: TYPE 2 DIABETES MELLITUS
     Dosage: 10 UG, UNKNOWN
     Route: 058
     Dates: start: 20070301, end: 20070401
  2. BYETTA [Suspect]
     Dosage: 10 UG, 2/D
     Route: 058
     Dates: start: 20070401
  3. LIPITOR [Concomitant]
     Dosage: 80 MG, UNK
  4. LEVEMIR [Concomitant]
     Dosage: UNK, UNKNOWN
     Route: 058
  5. METFORMIN HCL [Concomitant]
     Dosage: UNK, UNKNOWN
     Route: 065
  6. LASIX [Concomitant]
     Dosage: UNK, UNKNOWN
     Route: 065
  7. ZESTRIL [Concomitant]
     Dosage: UNK, UNKNOWN
     Route: 065
     Dates: end: 20080601

REACTIONS (1)
  - PANCREATITIS [None]
